FAERS Safety Report 25419306 (Version 1)
Quarter: 2025Q2

REPORT INFORMATION
  Report Type: Report from Study
  Country: FR (occurrence: FR)
  Receive Date: 20250610
  Receipt Date: 20250610
  Transmission Date: 20250716
  Serious: Yes (Hospitalization)
  Sender: PFIZER
  Company Number: FR-PFM-2025-02748

PATIENT
  Age: 55 Year
  Sex: Female
  Weight: 40 kg

DRUGS (6)
  1. ENCORAFENIB [Suspect]
     Active Substance: ENCORAFENIB
     Indication: Metastatic malignant melanoma
     Dosage: 300 MG, DAILY
     Route: 065
     Dates: start: 20240420
  2. ENCORAFENIB [Suspect]
     Active Substance: ENCORAFENIB
     Indication: BRAF gene mutation
  3. BINIMETINIB [Suspect]
     Active Substance: BINIMETINIB
     Indication: Metastatic malignant melanoma
     Dosage: 60 MG, DAILY
     Route: 065
     Dates: start: 20240420
  4. BINIMETINIB [Suspect]
     Active Substance: BINIMETINIB
     Indication: BRAF gene mutation
  5. OXYCONTIN [Concomitant]
     Active Substance: OXYCODONE HYDROCHLORIDE
     Indication: Arthropathy
     Dosage: 20 MG, BID (2/DAY)
     Route: 065
     Dates: start: 202406
  6. OXYCODONE HYDROCHLORIDE [Concomitant]
     Active Substance: OXYCODONE HYDROCHLORIDE
     Indication: Arthropathy
     Route: 065
     Dates: start: 202406

REACTIONS (1)
  - Acute respiratory failure [Recovered/Resolved]

NARRATIVE: CASE EVENT DATE: 20250404
